APPROVED DRUG PRODUCT: MIDODRINE HYDROCHLORIDE
Active Ingredient: MIDODRINE HYDROCHLORIDE
Strength: 5MG
Dosage Form/Route: TABLET;ORAL
Application: A077746 | Product #002 | TE Code: AB
Applicant: APOTEX INC
Approved: Sep 12, 2006 | RLD: No | RS: No | Type: RX